FAERS Safety Report 10076747 (Version 1)
Quarter: 2014Q2

REPORT INFORMATION
  Report Type: Spontaneous
  Country: US (occurrence: US)
  Receive Date: 20140414
  Receipt Date: 20140414
  Transmission Date: 20141212
  Serious: Yes (Hospitalization)
  Sender: FDA-Public Use
  Company Number: US-B.I. PHARMACEUTICALS,INC./RIDGEFIELD-2014-BI-15827BP

PATIENT
  Age: 54 Year
  Sex: Female
  Weight: 30 kg

DRUGS (10)
  1. COMBIVENT [Suspect]
     Indication: CHRONIC OBSTRUCTIVE PULMONARY DISEASE
     Dosage: DOSE PER APPLICATION:20 MCG / 100 MCG; DAILY DOSE: 80 MCG / 400 MG
     Route: 055
     Dates: start: 2013
  2. PREDNISONE [Concomitant]
     Indication: ANXIETY
     Route: 065
  3. POTASSIUM [Concomitant]
     Dosage: 10 MEQ
     Route: 065
  4. OMEPRAZOLE [Concomitant]
     Indication: DYSPEPSIA
     Dosage: 20 MG
     Route: 065
  5. METOPROLOL [Concomitant]
     Dosage: 200 MG
     Route: 065
  6. IMIPRAMINE [Concomitant]
     Dosage: 100 MG
     Route: 048
  7. IMIPRAMINE [Concomitant]
     Dosage: 150 MG
     Route: 065
  8. VITAMIN D [Concomitant]
     Dosage: 1 ANZ
     Route: 048
  9. VITAMIN B12 [Concomitant]
     Dosage: 1000 MG
     Route: 065
  10. MUCINEX [Concomitant]
     Route: 065

REACTIONS (3)
  - Dyspnoea [Recovered/Resolved]
  - Intestinal obstruction [Recovered/Resolved]
  - Bowel movement irregularity [Recovered/Resolved]
